FAERS Safety Report 19502937 (Version 1)
Quarter: 2021Q3

REPORT INFORMATION
  Report Type: Spontaneous
  Country: IR (occurrence: IR)
  Receive Date: 20210707
  Receipt Date: 20210707
  Transmission Date: 20211014
  Serious: Yes (Other)
  Sender: FDA-Public Use
  Company Number: IR-SUN PHARMACEUTICAL INDUSTRIES LTD-2021R1-302584

PATIENT
  Age: 47 Year
  Sex: Male

DRUGS (4)
  1. LEVODOPA C FORTE [Suspect]
     Active Substance: CARBIDOPA\LEVODOPA
     Dosage: 1/2 EVERY 2 HRS, EVERY ONE HOUR, AND SOMETIMES EVERY HALF AN HOUR
     Route: 065
  2. PRAMIPEXOLE. [Suspect]
     Active Substance: PRAMIPEXOLE
     Dosage: 1/2 TAB EVERY 3 TO 4 HRS
     Route: 065
  3. PRAMIPEXOLE. [Suspect]
     Active Substance: PRAMIPEXOLE
     Indication: PARKINSON^S DISEASE
     Dosage: 0.7 Q 6 HRS
     Route: 065
  4. LEVODOPA C FORTE [Suspect]
     Active Substance: CARBIDOPA\LEVODOPA
     Indication: PARKINSON^S DISEASE
     Dosage: UNK 6HRS
     Route: 065

REACTIONS (1)
  - Disease progression [Unknown]
